FAERS Safety Report 8270658-8 (Version None)
Quarter: 2012Q2

REPORT INFORMATION
  Report Type: 
  Country: None (occurrence: None)
  Receive Date: 20120406
  Receipt Date: 20120327
  Transmission Date: 20120825
  Serious: Yes (Death)
  Sender: FDA-Public Use
  Company Number: TCI2012A01507

PATIENT
  Age: 81 Year
  Sex: Male

DRUGS (3)
  1. PAXIL [Concomitant]
  2. ZOLPIDEM TARTRATE [Concomitant]
  3. ROZEREM [Suspect]
     Indication: INITIAL INSOMNIA
     Dosage: 8 MG (8 MG, 1 IN 1 D), PER ORAL
     Route: 048

REACTIONS (1)
  - MYOCARDIAL INFARCTION [None]
